FAERS Safety Report 9050479 (Version 1)
Quarter: 2013Q1

REPORT INFORMATION
  Report Type: Spontaneous
  Country: US (occurrence: US)
  Receive Date: 20130205
  Receipt Date: 20130205
  Transmission Date: 20140127
  Serious: Yes (Death)
  Sender: FDA-Public Use
  Company Number: US-INCYTE CORPORATION-2013IN000110

PATIENT
  Age: 77 None
  Sex: Male
  Weight: 59.7 kg

DRUGS (1)
  1. JAKAFI [Suspect]
     Dosage: NOT SPECIFIED
     Route: 048
     Dates: start: 20121215

REACTIONS (1)
  - Death [Fatal]
